FAERS Safety Report 4401964-2 (Version None)
Quarter: 2004Q3

REPORT INFORMATION
  Report Type: 
  Country: None (occurrence: None)
  Receive Date: 20040714
  Receipt Date: 20040625
  Transmission Date: 20050211
  Serious: Yes (Hospitalization)
  Sender: FDA-Public Use
  Company Number: USA040671170

PATIENT
  Age: 62 Year
  Sex: Female

DRUGS (4)
  1. HUMALOG [Suspect]
     Indication: DIABETES MELLITUS
     Dates: start: 20040501, end: 20040501
  2. HUMULIN R [Suspect]
     Dates: start: 20040101, end: 20040501
  3. SYNTHROID [Concomitant]
  4. GLUCOPHAGE [Concomitant]

REACTIONS (6)
  - CATHETER RELATED INFECTION [None]
  - PHARMACEUTICAL PRODUCT COMPLAINT [None]
  - POST PROCEDURAL COMPLICATION [None]
  - POSTOPERATIVE INFECTION [None]
  - STAPHYLOCOCCAL INFECTION [None]
  - WEIGHT LOSS DIET [None]
